FAERS Safety Report 19278976 (Version 1)
Quarter: 2021Q2

REPORT INFORMATION
  Report Type: Spontaneous
  Country: CN (occurrence: CN)
  Receive Date: 20210520
  Receipt Date: 20210520
  Transmission Date: 20210717
  Serious: Yes (Other)
  Sender: FDA-Public Use
  Company Number: CN-ROCHE-2831008

PATIENT
  Age: 65 Year
  Sex: Female

DRUGS (5)
  1. PACLITAXEL. [Concomitant]
     Active Substance: PACLITAXEL
     Indication: BREAST CANCER
     Dates: start: 202012
  2. HERCEPTIN [Suspect]
     Active Substance: TRASTUZUMAB
     Indication: LUNG NEOPLASM MALIGNANT
  3. HERCEPTIN [Suspect]
     Active Substance: TRASTUZUMAB
     Indication: BREAST CANCER
     Dosage: FIRST DOSE 8 MG/KG; THE LATER DOSE 6 MG/KG, ONCE PER 3 WEEKS
     Route: 065
     Dates: start: 202012
  4. PERJETA [Suspect]
     Active Substance: PERTUZUMAB
     Indication: BREAST CANCER
     Dosage: FIRST DOSE 840 MG; THE LATER DOSE 420 MG, ONCE PER 3 WEEKS
     Route: 065
     Dates: start: 202012
  5. PERJETA [Suspect]
     Active Substance: PERTUZUMAB
     Indication: LUNG NEOPLASM MALIGNANT

REACTIONS (1)
  - Pericardial effusion [Unknown]

NARRATIVE: CASE EVENT DATE: 202104
